FAERS Safety Report 16469195 (Version 1)
Quarter: 2019Q3

REPORT INFORMATION
  Report Type: Spontaneous
  Country: US (occurrence: US)
  Receive Date: 20190621
  Receipt Date: 20190621
  Transmission Date: 20191004
  Serious: Yes (Life-Threatening, Hospitalization, Disabling)
  Sender: FDA-Public Use
  Company Number: None

PATIENT
  Age: 47 Year
  Sex: Male
  Weight: 96.75 kg

DRUGS (1)
  1. SOMADERM TRANSDERMAL GEL [Suspect]
     Active Substance: HOMEOPATHICS
     Indication: HORMONE LEVEL ABNORMAL
     Route: 061
     Dates: start: 20180501, end: 20181106

REACTIONS (1)
  - Renal failure [None]

NARRATIVE: CASE EVENT DATE: 20181112
